FAERS Safety Report 8767514 (Version 2)
Quarter: 2012Q4

REPORT INFORMATION
  Report Type: 
  Country: DK (occurrence: DK)
  Receive Date: 20120904
  Receipt Date: 20120907
  Transmission Date: 20130627
  Serious: Yes (Hospitalization, Other)
  Sender: FDA-Public Use
  Company Number: PHHY2012DK075337

PATIENT
  Age: 20 Year
  Sex: Male

DRUGS (5)
  1. RITALIN UNO [Suspect]
     Dosage: 420 mg, UNK
     Route: 048
     Dates: start: 20120602
  2. ABILIFY [Suspect]
     Dosage: 130 mg, UNK
     Route: 048
     Dates: start: 20120602
  3. CIRCADIN [Suspect]
     Dosage: 15 mg, UNK
     Route: 048
     Dates: start: 20120602
  4. SIFROL [Suspect]
     Dosage: 1232 mg, UNK
     Route: 048
     Dates: start: 20120602
  5. TRUXAL [Suspect]
     Dosage: 1100 mg, UNK
     Route: 048
     Dates: start: 20120602

REACTIONS (13)
  - Cardiac disorder [Unknown]
  - Atrial fibrillation [Unknown]
  - Tachycardia [Unknown]
  - Sensation of heaviness [Unknown]
  - Gait disturbance [Unknown]
  - Restlessness [Unknown]
  - Pain in extremity [Unknown]
  - Risus sardonicus [Unknown]
  - Dystonia [Unknown]
  - Body temperature decreased [Unknown]
  - Abdominal pain upper [Unknown]
  - Suicide attempt [Unknown]
  - Intentional overdose [Unknown]
